FAERS Safety Report 4306926-1 (Version None)
Quarter: 2004Q1

REPORT INFORMATION
  Report Type: 
  Country: None (occurrence: None)
  Receive Date: 20040227
  Receipt Date: 20040218
  Transmission Date: 20041129
  Serious: Yes (Other)
  Sender: FDA-Public Use
  Company Number: WAES 0402USA01493M

PATIENT
  Age: 22 Year
  Sex: Female

DRUGS (3)
  1. DIGOXIN [Concomitant]
     Dates: start: 20000901
  2. FUROSEMIDE [Concomitant]
     Dates: start: 20000901
  3. COZAAR [Suspect]
     Route: 048
     Dates: start: 20000901

REACTIONS (6)
  - BREECH DELIVERY [None]
  - CEREBELLAR HYPOPLASIA [None]
  - DELAYED FONTANELLE CLOSURE [None]
  - DRUG EXPOSURE DURING PREGNANCY [None]
  - FEEDING PROBLEM IN NEWBORN [None]
  - OLIGURIA [None]
